FAERS Safety Report 5146484-5 (Version None)
Quarter: 2006Q4

REPORT INFORMATION
  Report Type: 
  Country: None (occurrence: None)
  Receive Date: 20061102
  Receipt Date: 20061023
  Transmission Date: 20070319
  Serious: Yes (Other)
  Sender: FDA-Public Use
  Company Number: HQWYE446423OCT06

PATIENT
  Age: 54 Year
  Sex: Female
  Weight: 68.1 kg

DRUGS (3)
  1. CORDARONE [Suspect]
     Indication: ATRIAL FIBRILLATION
     Dosage: 600 MG 1X PER 1 DAY
  2. WARFARIN SODIUM [Concomitant]
  3. ZOLPIDEM TARTRATE [Concomitant]

REACTIONS (8)
  - DRUG TOXICITY [None]
  - EYE DISORDER [None]
  - HEADACHE [None]
  - KERATOPATHY [None]
  - PAPILLOEDEMA [None]
  - VISION BLURRED [None]
  - VISUAL FIELD DEFECT [None]
  - VITREOUS FLOATERS [None]
